FAERS Safety Report 9076149 (Version 1)
Quarter: 2013Q1

REPORT INFORMATION
  Report Type: Report from Study
  Country: US (occurrence: US)
  Receive Date: 20130129
  Receipt Date: 20130129
  Transmission Date: 20140127
  Serious: Yes (Other)
  Sender: FDA-Public Use
  Company Number: US-ABBOTT-12P-163-0929576-00

PATIENT
  Sex: Female
  Weight: 67.19 kg

DRUGS (3)
  1. HUMIRA 40 MG/0.8 ML PEN [Suspect]
     Indication: PSORIASIS
     Dates: start: 201108, end: 201201
  2. ARAVA [Concomitant]
     Indication: PRODUCT USED FOR UNKNOWN INDICATION
  3. FLEXERIL [Concomitant]
     Indication: PRODUCT USED FOR UNKNOWN INDICATION

REACTIONS (6)
  - Tuberculosis [Not Recovered/Not Resolved]
  - Night sweats [Unknown]
  - Chest discomfort [Unknown]
  - Pyrexia [Unknown]
  - Pneumonia [Unknown]
  - Malaise [Unknown]
